FAERS Safety Report 5112506-0 (Version None)
Quarter: 2006Q3

REPORT INFORMATION
  Report Type: 
  Country: None (occurrence: None)
  Receive Date: 20060922
  Receipt Date: 20060913
  Transmission Date: 20061208
  Serious: Yes (Other)
  Sender: FDA-Public Use
  Company Number: US-AVENTIS-200617793US

PATIENT
  Sex: Female

DRUGS (1)
  1. KETEK [Suspect]
     Dosage: DOSE: UNK
     Route: 048

REACTIONS (2)
  - HEPATIC ENZYME INCREASED [None]
  - HEPATITIS [None]
